FAERS Safety Report 6461881-3 (Version None)
Quarter: 2009Q4

REPORT INFORMATION
  Report Type: 
  Country: None (occurrence: None)
  Receive Date: 20091130
  Receipt Date: 20091119
  Transmission Date: 20100525
  Serious: Yes (Hospitalization)
  Sender: FDA-Public Use
  Company Number: PHHY2009IT50784

PATIENT
  Age: 73 Year
  Sex: Female

DRUGS (1)
  1. ZOMETA [Suspect]
     Indication: METASTASES TO BREAST
     Dosage: 4 MG, QMO
     Route: 042
     Dates: start: 20070205, end: 20090715

REACTIONS (3)
  - BONE DISORDER [None]
  - BONE LESION [None]
  - PURULENT DISCHARGE [None]
